FAERS Safety Report 10621741 (Version 3)
Quarter: 2015Q1

REPORT INFORMATION
  Report Type: Spontaneous
  Country: US (occurrence: US)
  Receive Date: 20141203
  Receipt Date: 20150129
  Transmission Date: 20150720
  Serious: No
  Sender: FDA-Public Use
  Company Number: US-PFIZER INC-2014303548

PATIENT
  Age: 65 Year
  Sex: Female

DRUGS (7)
  1. ATORVASTATIN [Concomitant]
     Active Substance: ATORVASTATIN
     Dosage: UNK
     Dates: start: 2013
  2. ZYVOX [Suspect]
     Active Substance: LINEZOLID
     Indication: URINARY TRACT INFECTION
     Dosage: 400 MG, 2X/DAY
     Dates: start: 20140927
  3. ZYVOX [Suspect]
     Active Substance: LINEZOLID
     Dosage: 600 MG, UNK
  4. LEVOTHYROXINE [Concomitant]
     Active Substance: LEVOTHYROXINE
     Dosage: UNK
  5. ZYVOX [Suspect]
     Active Substance: LINEZOLID
     Indication: CYSTITIS
     Dosage: 400 MG, UNK
     Dates: start: 20140926
  6. NITROFURANTOIN MONO MAC [Concomitant]
     Dosage: UNK
     Dates: start: 20141230
  7. DEXILANT [Concomitant]
     Active Substance: DEXLANSOPRAZOLE
     Dosage: UNK
     Dates: start: 20141202

REACTIONS (2)
  - Product use issue [Recovered/Resolved]
  - Nausea [Recovered/Resolved]
